FAERS Safety Report 11952539 (Version 1)
Quarter: 2016Q1

REPORT INFORMATION
  Report Type: Spontaneous
  Country: US (occurrence: US)
  Receive Date: 20160125
  Receipt Date: 20160125
  Transmission Date: 20160526
  Serious: Yes (Other)
  Sender: FDA-Public Use
  Company Number: US-VALIDUS PHARMACEUTICALS LLC-US-2016VAL000079

PATIENT
  Age: 52 Year
  Sex: Male

DRUGS (3)
  1. BENAZEPRIL HYDROCHLORIDE. [Suspect]
     Active Substance: BENAZEPRIL HYDROCHLORIDE
     Dosage: 40 MG, UNK
  2. HYDROCHLOROTHIAZIDE. [Concomitant]
     Active Substance: HYDROCHLOROTHIAZIDE
     Indication: HYPERTENSION
     Dosage: UNK
  3. BENAZEPRIL HYDROCHLORIDE. [Suspect]
     Active Substance: BENAZEPRIL HYDROCHLORIDE
     Indication: HYPERTENSION
     Dosage: 20 MG, UNK

REACTIONS (6)
  - Scrotal oedema [Recovered/Resolved]
  - Angioedema [Recovered/Resolved]
  - Penile pain [Recovered/Resolved]
  - Scrotal pain [Recovered/Resolved]
  - Penile oedema [Recovered/Resolved]
  - Oropharyngeal swelling [Recovered/Resolved]
